FAERS Safety Report 7284845-9 (Version None)
Quarter: 2011Q1

REPORT INFORMATION
  Report Type: 
  Country: None (occurrence: None)
  Receive Date: 20110210
  Receipt Date: 20110128
  Transmission Date: 20110831
  Serious: Yes (Death, Hospitalization)
  Sender: FDA-Public Use
  Company Number: US-ENDO PHARMACEUTICALS INC.-VALS20100124

PATIENT
  Sex: Female
  Weight: 48.124 kg

DRUGS (8)
  1. VALSTAR PRESERVATIVE FREE [Suspect]
     Indication: CARCINOMA IN SITU
     Route: 043
     Dates: start: 20101011, end: 20101011
  2. RYTHMOL [Concomitant]
  3. COUMADIN [Concomitant]
  4. BENICAR [Concomitant]
  5. ASPIRIN [Concomitant]
  6. LIPITOR [Concomitant]
  7. PLAVIX [Concomitant]
  8. ATIVAN [Concomitant]

REACTIONS (3)
  - URETERIC OBSTRUCTION [None]
  - CARDIOPULMONARY FAILURE [None]
  - HAEMATURIA [None]
